FAERS Safety Report 6174751-5 (Version None)
Quarter: 2009Q2

REPORT INFORMATION
  Report Type: 
  Country: None (occurrence: None)
  Receive Date: 20090430
  Receipt Date: 20080911
  Transmission Date: 20091009
  Serious: No
  Sender: FDA-Public Use
  Company Number: US-ASTRAZENECA-2008UW18906

PATIENT
  Age: 74 Year
  Sex: Male
  Weight: 88.5 kg

DRUGS (4)
  1. NEXIUM [Suspect]
     Route: 048
  2. BACTRIM [Concomitant]
     Indication: URINARY TRACT INFECTION
  3. LISINOPRIL [Concomitant]
  4. ATIVAN [Concomitant]

REACTIONS (2)
  - FATIGUE [None]
  - FEELING ABNORMAL [None]
